FAERS Safety Report 10700371 (Version 1)
Quarter: 2014Q4

REPORT INFORMATION
  Report Type: Spontaneous
  Country: US (occurrence: None)
  Receive Date: 20141223
  Receipt Date: 20141223
  Transmission Date: 20150529
  Serious: No
  Sender: FDA-Public Use
  Company Number: 1000071309

PATIENT
  Age: 69 Year
  Sex: Female

DRUGS (5)
  1. XANAX (ALPRAZOLAM) (ALPRAZOLAM) [Concomitant]
  2. LEVSIN (HYOSCYAMINE SULFATE) (HYOSCYAMINE SULFATE) [Concomitant]
  3. NARDIL [Suspect]
     Active Substance: PHENELZINE SULFATE
     Indication: DEPRESSION
  4. LINZESS [Suspect]
     Active Substance: LINACLOTIDE
     Dosage: 145MCG (145 MCG, 1 IN 1 D), ORAL
     Route: 048
     Dates: start: 20141002, end: 20141002
  5. NARDIL [Suspect]
     Active Substance: PHENELZINE SULFATE
     Indication: PANIC ATTACK

REACTIONS (3)
  - Dizziness [None]
  - Headache [None]
  - Nausea [None]

NARRATIVE: CASE EVENT DATE: 20141003
